FAERS Safety Report 5340063-2 (Version None)
Quarter: 2007Q2

REPORT INFORMATION
  Report Type: 
  Country: None (occurrence: None)
  Receive Date: 20070405
  Receipt Date: 20061110
  Transmission Date: 20071010
  Serious: Yes (Other)
  Sender: FDA-Public Use
  Company Number: US200611001964

PATIENT
  Sex: Female

DRUGS (3)
  1. CYMBALTA [Suspect]
  2. LITHIUM CARBONATE [Concomitant]
  3. ABILIFY [Concomitant]

REACTIONS (1)
  - SEROTONIN SYNDROME [None]
